FAERS Safety Report 14229337 (Version 2)
Quarter: 2018Q1

REPORT INFORMATION
  Report Type: Report from Study
  Country: None (occurrence: CA)
  Receive Date: 20171128
  Receipt Date: 20180109
  Transmission Date: 20180508
  Serious: Yes (Other)
  Sender: FDA-Public Use
  Company Number: CA-ABBVIE-17K-028-2174585-00

PATIENT
  Age: 24 Year
  Sex: Female
  Weight: 120.76 kg

DRUGS (6)
  1. HUMIRA [Suspect]
     Active Substance: ADALIMUMAB
     Route: 058
     Dates: start: 20170327
  2. CELESTODERM [Concomitant]
     Active Substance: BETAMETHASONE VALERATE
     Indication: PRODUCT USED FOR UNKNOWN INDICATION
     Dosage: 0.1%
     Dates: start: 20160721
  3. BETADERM [Concomitant]
     Active Substance: BETAMETHASONE VALERATE
     Indication: HIDRADENITIS
     Dosage: 0.1%
     Route: 061
     Dates: start: 20160314
  4. HUMIRA [Suspect]
     Active Substance: ADALIMUMAB
     Indication: HIDRADENITIS
     Dosage: FIRST LOADING DOSE
     Route: 058
     Dates: start: 20170227, end: 20170227
  5. HUMIRA [Suspect]
     Active Substance: ADALIMUMAB
     Dosage: SECOND LOADING DOSE
     Route: 058
     Dates: start: 20170313, end: 20170313
  6. DALACIN T [Concomitant]
     Active Substance: CLINDAMYCIN PHOSPHATE
     Indication: PRODUCT USED FOR UNKNOWN INDICATION
     Dosage: 1% SOLUTION
     Dates: start: 20170721

REACTIONS (3)
  - Acanthosis nigricans [Not Recovered/Not Resolved]
  - Fungal infection [Unknown]
  - Influenza [Unknown]

NARRATIVE: CASE EVENT DATE: 20170718
